FAERS Safety Report 9333490 (Version 2)
Quarter: 2013Q2

REPORT INFORMATION
  Report Type: Report from Study
  Country: AR (occurrence: AR)
  Receive Date: 20130606
  Receipt Date: 20130613
  Transmission Date: 20140414
  Serious: Yes (Other)
  Sender: FDA-Public Use
  Company Number: PHHY2013AR057447

PATIENT
  Sex: Female

DRUGS (2)
  1. DIOVAN D [Suspect]
     Indication: HYPERTENSION
     Dosage: 1 DF(320/25 UNSPECIFIED UNITS), DAILY
     Route: 048
  2. DIOVAN D [Suspect]
     Dosage: 0.5 DF, DAILY

REACTIONS (2)
  - Cataract [Unknown]
  - Wrong technique in drug usage process [Unknown]
